FAERS Safety Report 7781668-9 (Version None)
Quarter: 2011Q3

REPORT INFORMATION
  Report Type: 
  Country: None (occurrence: None)
  Receive Date: 20110927
  Receipt Date: 20110912
  Transmission Date: 20111222
  Serious: Yes (Other)
  Sender: FDA-Public Use
  Company Number: QA-BAYER-2011-085791

PATIENT

DRUGS (4)
  1. ACETYLSALICYLIC ACID SRT [Suspect]
     Indication: ACUTE MYOCARDIAL INFARCTION
     Route: 064
  2. HEPARIN [Concomitant]
  3. PROPRANOLOL [Concomitant]
  4. CLOPIDOGREL [Suspect]
     Indication: ACUTE MYOCARDIAL INFARCTION
     Route: 064

REACTIONS (1)
  - FOETAL DISTRESS SYNDROME [None]
